FAERS Safety Report 23821776 (Version 1)
Quarter: 2024Q2

REPORT INFORMATION
  Report Type: Spontaneous
  Country: CA (occurrence: CA)
  Receive Date: 20240506
  Receipt Date: 20240506
  Transmission Date: 20240715
  Serious: Yes (Hospitalization, Other)
  Sender: FDA-Public Use
  Company Number: CA-BAXTER-2024BAX017739

PATIENT
  Age: 46 Year
  Sex: Female
  Weight: 120 kg

DRUGS (8)
  1. ACETAMINOPHEN [Suspect]
     Active Substance: ACETAMINOPHEN
     Indication: Product used for unknown indication
     Dosage: (DOSAGE FORM: NOT SPECIFIED) AT AN UNSPECIFIED DOSE AND FREQUENCY (ACETAMINOPHEN)
     Route: 065
  2. OMALIZUMAB [Suspect]
     Active Substance: OMALIZUMAB
     Indication: Chronic spontaneous urticaria
     Dosage: 300.0 MILLIGRAM AT AN UNSPECIFIED FREQUENCY
     Route: 058
  3. OMALIZUMAB [Suspect]
     Active Substance: OMALIZUMAB
     Indication: Asthma
     Dosage: 300.0 MILLIGRAM AT AN UNSPECIFIED FREQUENCY
     Route: 065
  4. OMALIZUMAB [Suspect]
     Active Substance: OMALIZUMAB
     Indication: Chronic spontaneous urticaria
     Dosage: (DOSAGE FORM: NOT SPECIFIED) 300.0 MILLIGRAM AT AN UNSPECIFIED FREQUENCY
     Route: 058
  5. OMALIZUMAB [Suspect]
     Active Substance: OMALIZUMAB
     Indication: Asthma
  6. ADVAIR HFA [Concomitant]
     Active Substance: FLUTICASONE PROPIONATE\SALMETEROL XINAFOATE
     Indication: Asthma
     Dosage: (DOSAGE FORM: NOT SPECIFIED) 1.0 DOSAGE FORMS 2 EVERY 1 DAYS
     Route: 065
  7. BETAHISTINE [Concomitant]
     Active Substance: BETAHISTINE
     Indication: Dizziness
     Dosage: 2.0 DOSAGE FORMS, AT AN UNSPECIFIED FREQUENCY
     Route: 048
  8. VENTOLIN [Concomitant]
     Active Substance: ALBUTEROL SULFATE
     Indication: Asthma
     Dosage: (DOSAGE FORM: NOT SPECIFIED) 1.0 DOSAGE FORM AT AN UNSPECIFIED FREQUENCY
     Route: 065

REACTIONS (12)
  - Alopecia [Unknown]
  - Asthma [Unknown]
  - COVID-19 [Unknown]
  - Inappropriate schedule of product administration [Unknown]
  - Off label use [Unknown]
  - Pain in extremity [Unknown]
  - Pneumonitis [Unknown]
  - Weight decreased [Unknown]
  - Fatigue [Unknown]
  - Drug hypersensitivity [Unknown]
  - Hypersensitivity [Unknown]
  - Anaphylactic reaction [Unknown]
